FAERS Safety Report 22878787 (Version 2)
Quarter: 2023Q4

REPORT INFORMATION
  Report Type: Spontaneous
  Country: None (occurrence: CA)
  Receive Date: 20230829
  Receipt Date: 20231018
  Transmission Date: 20240110
  Serious: Yes (Other)
  Sender: FDA-Public Use
  Company Number: CA-Harrow Eye-2145340

PATIENT
  Age: 21 Year
  Sex: Female
  Weight: 90.25 kg

DRUGS (23)
  1. VIGAMOX [Suspect]
     Active Substance: MOXIFLOXACIN HYDROCHLORIDE
     Indication: Product used for unknown indication
     Dates: start: 20230413
  2. METHOTREXATE [Suspect]
     Active Substance: METHOTREXATE
  3. LEFLUNOMIDE [Suspect]
     Active Substance: LEFLUNOMIDE
  4. FOLIC ACID [Suspect]
     Active Substance: FOLIC ACID
  5. VENLAFAXINE [Concomitant]
     Active Substance: VENLAFAXINE HYDROCHLORIDE
  6. DESOGESTREL AND ETHINYL ESTRADIOL [Concomitant]
     Active Substance: DESOGESTREL\ETHINYL ESTRADIOL
  7. SIMPONI [Concomitant]
     Active Substance: GOLIMUMAB
     Dates: end: 20230725
  8. DANAZOL [Concomitant]
     Active Substance: DANAZOL
  9. IBUPROFEN [Concomitant]
     Active Substance: IBUPROFEN
  10. NAPROXEN [Concomitant]
     Active Substance: NAPROXEN
  11. PREDNISONE [Concomitant]
     Active Substance: PREDNISONE
  12. HUMIRA [Concomitant]
     Active Substance: ADALIMUMAB
  13. ENBREL [Concomitant]
     Active Substance: ETANERCEPT
  14. METHOTREXATE [Concomitant]
     Active Substance: METHOTREXATE
  15. AMOXICILLIN [Concomitant]
     Active Substance: AMOXICILLIN
     Dates: start: 20230727
  16. PERIDEX [Concomitant]
     Active Substance: CHLORHEXIDINE GLUCONATE
     Dates: start: 20230725
  17. MOXIFLOXACIN [Concomitant]
     Active Substance: MOXIFLOXACIN
     Dates: start: 20230725
  18. LORAZEPAM [Concomitant]
     Active Substance: LORAZEPAM
  19. TRAZODONE HCL [Concomitant]
     Active Substance: TRAZODONE HYDROCHLORIDE
  20. FUCIDIN [Concomitant]
     Active Substance: FUSIDATE SODIUM
  21. CETIRIZINE [Concomitant]
     Active Substance: CETIRIZINE HYDROCHLORIDE
  22. EFFEXOR [Concomitant]
     Active Substance: VENLAFAXINE HYDROCHLORIDE
  23. LEVONORGESTREL AND ETHINYL ESTRADIOL [Concomitant]
     Active Substance: ETHINYL ESTRADIOL\LEVONORGESTREL

REACTIONS (7)
  - Juvenile idiopathic arthritis [Unknown]
  - Iridocyclitis [Unknown]
  - Uveitis [Unknown]
  - Diarrhoea [Unknown]
  - Drug interaction [Unknown]
  - Drug ineffective [Unknown]
  - Sinusitis [Unknown]
